FAERS Safety Report 22373891 (Version 1)
Quarter: 2023Q2

REPORT INFORMATION
  Report Type: Spontaneous
  Country: US (occurrence: US)
  Receive Date: 20230526
  Receipt Date: 20230526
  Transmission Date: 20230721
  Serious: Yes (Other)
  Sender: FDA-Public Use
  Company Number: US-TEVA-2023-US-2891497

PATIENT
  Age: 64 Year
  Sex: Male
  Weight: 115.2 kg

DRUGS (15)
  1. LOSARTAN POTASSIUM [Suspect]
     Active Substance: LOSARTAN POTASSIUM
     Indication: Hypertension
     Dosage: 100MG
     Route: 065
     Dates: start: 20161007, end: 20170115
  2. LOSARTAN POTASSIUM [Suspect]
     Active Substance: LOSARTAN POTASSIUM
     Indication: Hypertension
     Dosage: 100 MG
     Route: 065
     Dates: start: 20151021, end: 20170413
  3. LOSARTAN POTASSIUM [Suspect]
     Active Substance: LOSARTAN POTASSIUM
     Dosage: 100 MG
     Route: 065
     Dates: start: 20170710, end: 20180607
  4. LOSARTAN POTASSIUM [Suspect]
     Active Substance: LOSARTAN POTASSIUM
     Dosage: 100MG, LOT:180886-88, 180905, 181123-25, 181351-52, 181628-29, BATCH: 181727-28, 181890-910), HETERO
     Route: 065
     Dates: start: 20180701, end: 20181204
  5. LISINOPRIL [Concomitant]
     Active Substance: LISINOPRIL
     Indication: Hypertension
     Dosage: 20 MILLIGRAM DAILY; 20MG, 30 TABLETS, TAKEN ONE TABLET A DAY
     Route: 065
     Dates: start: 20111105, end: 20151113
  6. SIMVASTATIN [Concomitant]
     Active Substance: SIMVASTATIN
     Indication: Hyperlipidaemia
     Dosage: 80 MILLIGRAM DAILY; 80MG, 30 TABLETS, TAKEN ONE TABLET A DAY
     Route: 065
     Dates: start: 20120404, end: 20141117
  7. SIMVASTATIN [Concomitant]
     Active Substance: SIMVASTATIN
     Dosage: 40 MILLIGRAM DAILY; 40MG, 90 TABLETS, TAKEN ONE TABLET A DAY
     Route: 065
     Dates: start: 20150424, end: 20160121
  8. HYDROCHLOROTHIAZIDE [Concomitant]
     Active Substance: HYDROCHLOROTHIAZIDE
     Indication: Product used for unknown indication
     Dosage: 25 MILLIGRAM DAILY; 25 MG, 90 TABLETS, TAKEN ONE TABLET A DAY) AS DIURETICS/WATER PILLS
     Route: 065
     Dates: start: 20141017, end: 20151009
  9. METOPROLOL SUCCINATE [Concomitant]
     Active Substance: METOPROLOL SUCCINATE
     Indication: Hypertension
     Dosage: 100 MILLIGRAM DAILY; 100MG, 90 TABLETS, TAKEN ONE TABLET A DAY
     Route: 065
     Dates: start: 20151021, end: 20200830
  10. AMLODIPINE [Concomitant]
     Active Substance: AMLODIPINE BESYLATE
     Indication: Hypertension
     Dosage: 5 MILLIGRAM DAILY; 5MG, 90 TABLETS, TAKEN ONE TABLET A DAY
     Route: 065
     Dates: start: 20150724, end: 20170528
  11. METFORMIN [Concomitant]
     Active Substance: METFORMIN HYDROCHLORIDE
     Indication: Type 2 diabetes mellitus
     Dosage: 1000 MILLIGRAM DAILY; 500MG, 180 TABLETS, TAKEN 2 TABLETS A DAY
     Route: 065
     Dates: start: 20150424, end: 20171127
  12. ACETAMINOPHEN [Concomitant]
     Active Substance: ACETAMINOPHEN
     Indication: Pain
     Dosage: 2000 MILLIGRAM DAILY; 500MG, EVERY 6 HOURS, AS NEEDED
     Route: 065
     Dates: start: 20141114
  13. Mens 50 plus multi vit [Concomitant]
     Indication: Product used for unknown indication
     Dosage: VITAMINS AND HERBAL SUPPLEMENTS, 1 TABLET EVERY DAY FOR PERSONAL REASONS
     Route: 065
     Dates: start: 201903
  14. B complex vitamin [Concomitant]
     Indication: Product used for unknown indication
     Dosage: 1 TABLET EVERY DAY FOR PERSONAL REASONS
     Route: 065
     Dates: start: 201903
  15. POTASSIUM [Concomitant]
     Active Substance: POTASSIUM
     Indication: Product used for unknown indication
     Dosage: 99 MILLIGRAM DAILY; FOR PERSONAL REASONS
     Route: 065
     Dates: start: 201903

REACTIONS (1)
  - Oesophageal carcinoma [Unknown]
